FAERS Safety Report 21422877 (Version 1)
Quarter: 2022Q4

REPORT INFORMATION
  Report Type: Spontaneous
  Country: US (occurrence: US)
  Receive Date: 20221007
  Receipt Date: 20221007
  Transmission Date: 20230113
  Serious: Yes (Other)
  Sender: FDA-Public Use
  Company Number: US-AMGEN-USASP2022167064

PATIENT
  Age: 39 Year
  Sex: Female

DRUGS (8)
  1. RITUXIMAB [Suspect]
     Active Substance: RITUXIMAB
     Indication: Nodular lymphocyte predominant Hodgkin lymphoma
     Dosage: UNK
     Route: 065
  2. ADRIAMYCIN [Concomitant]
     Active Substance: DOXORUBICIN HYDROCHLORIDE
     Indication: Nodular lymphocyte predominant Hodgkin lymphoma
     Dosage: UNK
     Route: 065
  3. BLEOMYCIN [Concomitant]
     Active Substance: BLEOMYCIN SULFATE
     Indication: Nodular lymphocyte predominant Hodgkin lymphoma
     Dosage: UNK
     Route: 065
  4. VINBLASTINE [Concomitant]
     Active Substance: VINBLASTINE
     Indication: Nodular lymphocyte predominant Hodgkin lymphoma
     Dosage: UNK
     Route: 065
  5. DACARBAZINE [Concomitant]
     Active Substance: DACARBAZINE
     Indication: Nodular lymphocyte predominant Hodgkin lymphoma
     Dosage: UNK
     Route: 065
  6. IFOSFAMIDE [Concomitant]
     Active Substance: IFOSFAMIDE
     Indication: Nodular lymphocyte predominant Hodgkin lymphoma
     Dosage: UNK
     Route: 065
  7. CARBOPLATIN [Concomitant]
     Active Substance: CARBOPLATIN
     Indication: Nodular lymphocyte predominant Hodgkin lymphoma
     Dosage: UNK
     Route: 065
  8. ETOPOSIDE [Concomitant]
     Active Substance: ETOPOSIDE
     Indication: Nodular lymphocyte predominant Hodgkin lymphoma
     Dosage: UNK
     Route: 065

REACTIONS (2)
  - Diffuse large B-cell lymphoma [Unknown]
  - Off label use [Unknown]
